FAERS Safety Report 8729352 (Version 2)
Quarter: 2012Q4

REPORT INFORMATION
  Report Type: 
  Country: US (occurrence: US)
  Receive Date: 20120817
  Receipt Date: 20120903
  Transmission Date: 20130627
  Serious: Yes (Death, Other)
  Sender: FDA-Public Use
  Company Number: US-PFIZER INC-2012196896

PATIENT
  Age: 72 Year
  Sex: Female

DRUGS (8)
  1. REVATIO [Suspect]
     Indication: PULMONARY HYPERTENSION
     Dosage: 20 mg, 3x/day
     Route: 048
     Dates: start: 20120516
  2. BROVANA [Concomitant]
     Dosage: 15 ug, 2x/day
  3. SYNTHROID [Concomitant]
     Dosage: 175 ug, 1x/day
  4. PREDNISONE [Concomitant]
     Dosage: 7 mg, 1x/day
  5. AMLODIPINE [Concomitant]
     Dosage: 10 mg, 1x/day
  6. SPIRIVA [Concomitant]
     Dosage: 1 capsule per day
  7. FLUOXETINE [Concomitant]
     Dosage: 20 mg, 1x/day
  8. OMEPRAZOLE [Concomitant]
     Dosage: 40 mg, 1x/day

REACTIONS (1)
  - Death [Fatal]
